FAERS Safety Report 8424945-0 (Version None)
Quarter: 2012Q2

REPORT INFORMATION
  Report Type: 
  Country: None (occurrence: None)
  Receive Date: 20120611
  Receipt Date: 20120605
  Transmission Date: 20120825
  Serious: No
  Sender: FDA-Public Use
  Company Number: US-PFIZER INC-2012107434

PATIENT
  Sex: Male
  Weight: 99.773 kg

DRUGS (12)
  1. WELLBUTRIN [Concomitant]
     Indication: DEPRESSION
     Dosage: UNK
  2. VIAGRA [Suspect]
     Dosage: 200 MG, AS NEEDED
     Route: 048
     Dates: start: 20120101
  3. VIAGRA [Suspect]
     Dosage: 100 MG, AS NEEDED
     Route: 048
     Dates: start: 20120101, end: 20120101
  4. AFRIN [Concomitant]
     Indication: NASAL CONGESTION
     Dosage: UNK
     Route: 045
  5. EFFEXOR [Concomitant]
     Indication: DEPRESSION
     Dosage: UNK
  6. PROVIGIL [Concomitant]
     Indication: DEPRESSION
     Dosage: UNK
  7. PAXIL [Concomitant]
     Indication: DEPRESSION
     Dosage: UNK
  8. LAMICTAL [Concomitant]
     Indication: DEPRESSION
     Dosage: UNK
  9. VIAGRA [Suspect]
     Indication: ERECTILE DYSFUNCTION
     Dosage: 50 MG, AS NEEDED
     Route: 048
     Dates: end: 20120101
  10. CELEXA [Concomitant]
     Indication: DEPRESSION
     Dosage: UNK
  11. PREVACID [Concomitant]
     Dosage: UNK
  12. ARMODAFINIL [Concomitant]
     Indication: SLEEP APNOEA SYNDROME
     Dosage: UNK

REACTIONS (4)
  - DRUG EFFECT DECREASED [None]
  - GASTROOESOPHAGEAL REFLUX DISEASE [None]
  - NASAL CONGESTION [None]
  - FLUSHING [None]
